FAERS Safety Report 8785058 (Version 1)
Quarter: 2012Q4

REPORT INFORMATION
  Report Type: Report from Study
  Country: FR (occurrence: FR)
  Receive Date: 20120914
  Receipt Date: 20120914
  Transmission Date: 20130627
  Serious: Yes (Disabling)
  Sender: FDA-Public Use
  Company Number: FR-INCYTE CORPORATION-2012IN001729

PATIENT
  Age: 79 Year
  Sex: Male
  Weight: 70 kg

DRUGS (11)
  1. INC424 [Suspect]
     Indication: MYELOFIBROSIS
     Dosage: 15 mg, bid
     Route: 048
     Dates: start: 20120301, end: 20120814
  2. INC424 [Suspect]
     Dosage: 5 mg, bid
     Route: 048
     Dates: start: 20120821
  3. INC424 [Suspect]
     Dosage: 10 mg, bid
     Route: 048
  4. INC424 [Suspect]
     Dosage: 15 mg, bid
     Route: 065
     Dates: end: 20120824
  5. INC424 [Suspect]
     Dosage: UNK
     Route: 048
     Dates: start: 20120828
  6. HYDREA [Suspect]
     Indication: MYELOFIBROSIS
     Dosage: 1 DF, 3/per week
     Route: 065
     Dates: start: 20120807, end: 20120814
  7. HYDREA [Suspect]
     Dosage: 1-0-4 then 2-0-2 then 3-0-3
     Route: 065
     Dates: start: 20120821
  8. HYDREA [Suspect]
     Dosage: 2-0-2, UNK
     Route: 065
  9. DAFALGAN [Concomitant]
     Dosage: UNK
     Dates: start: 2011
  10. PREDNISONE [Concomitant]
     Dosage: UNK
     Dates: start: 2010
  11. LAMALINE [Concomitant]
     Dosage: UNK
     Dates: start: 2011

REACTIONS (9)
  - Diarrhoea [Not Recovered/Not Resolved]
  - General physical condition abnormal [None]
  - Abdominal pain [None]
  - Neutrophil count increased [None]
  - Haemoglobin decreased [None]
  - Platelet count decreased [None]
  - Syncope [None]
  - Asthenia [None]
  - Colitis [None]
